FAERS Safety Report 7723787-9 (Version None)
Quarter: 2011Q3

REPORT INFORMATION
  Report Type: 
  Country: None (occurrence: None)
  Receive Date: 20110901
  Receipt Date: 20110818
  Transmission Date: 20111222
  Serious: Yes (Other)
  Sender: FDA-Public Use
  Company Number: PHHY2011BR74404

PATIENT
  Sex: Female

DRUGS (3)
  1. ONBREZ [Suspect]
     Dosage: UNK UKN, UNK
  2. BUDESONIDE [Suspect]
     Dosage: 400 UG, UNK
  3. DIOVAN HCT [Suspect]
     Indication: BLOOD PRESSURE
     Dosage: 160 MG VALSARTAN/ 25 MG HYDROCHLOROTHIAZIDE

REACTIONS (4)
  - FATIGUE [None]
  - DEPRESSION [None]
  - DYSPNOEA [None]
  - WEIGHT INCREASED [None]
